FAERS Safety Report 24732401 (Version 1)
Quarter: 2024Q4

REPORT INFORMATION
  Report Type: Spontaneous
  Country: US (occurrence: US)
  Receive Date: 20241213
  Receipt Date: 20241213
  Transmission Date: 20250115
  Serious: Yes (Hospitalization)
  Sender: ORGANON
  Company Number: US-MLMSERVICE-20241129-PI274775-00208-1

PATIENT
  Age: 19 Year
  Sex: Male

DRUGS (4)
  1. COZAAR [Suspect]
     Active Substance: LOSARTAN POTASSIUM
     Dosage: 25 MG DAILY
  2. TACROLIMUS [Concomitant]
     Active Substance: TACROLIMUS
     Dosage: 2 MG TWICE DAILY
  3. MYCOPHENOLIC ACID [Concomitant]
     Active Substance: MYCOPHENOLIC ACID
     Dosage: 500 MG TWICE DAILY
  4. PREDNISONE [Concomitant]
     Active Substance: PREDNISONE
     Dosage: 5 MG DAILY

REACTIONS (1)
  - Blood creatinine increased [Recovering/Resolving]
